FAERS Safety Report 17803180 (Version 1)
Quarter: 2020Q2

REPORT INFORMATION
  Report Type: Spontaneous
  Country: US (occurrence: US)
  Receive Date: 20200519
  Receipt Date: 20200519
  Transmission Date: 20200714
  Serious: Yes (Other)
  Sender: FDA-Public Use
  Company Number: None

PATIENT
  Age: 69 Year
  Sex: Female
  Weight: 63 kg

DRUGS (22)
  1. GARLIC. [Concomitant]
     Active Substance: GARLIC
  2. MAGNESIUM CITRATE. [Concomitant]
     Active Substance: MAGNESIUM CITRATE
  3. CRAMBERRY [Concomitant]
  4. DBD OIL [Concomitant]
  5. DICLONFENAC SODIUM [Concomitant]
  6. COQ10 [Concomitant]
     Active Substance: UBIDECARENONE
  7. SULFURZYNE [Concomitant]
  8. VITAMIN D3 [Concomitant]
     Active Substance: CHOLECALCIFEROL
  9. BIOFREEZE [Concomitant]
     Active Substance: MENTHOL
  10. FUROSEMIDE. [Concomitant]
     Active Substance: FUROSEMIDE
  11. KONSYL [Concomitant]
     Active Substance: PSYLLIUM HUSK
  12. OCUVITE [Concomitant]
     Active Substance: VITAMINS
  13. IMATINIB. [Suspect]
     Active Substance: IMATINIB MESYLATE
     Indication: GASTROINTESTINAL STROMAL TUMOUR
     Route: 048
     Dates: start: 20191213
  14. ARNICARE ARNICA [Concomitant]
  15. PASSION FLOWER-VALERIAN [Concomitant]
  16. CHICORY [Concomitant]
  17. ST JOHNS WORT [Concomitant]
     Active Substance: ST. JOHN^S WORT
  18. PROBIOTIC [Concomitant]
     Active Substance: PROBIOTICS NOS
  19. MILK THISTLE [Concomitant]
     Active Substance: DIETARY SUPPLEMENT\HERBALS\MILK THISTLE
  20. MAGNESIUM OIL [Concomitant]
  21. VISINE [Concomitant]
     Active Substance: TETRAHYDROZOLINE HYDROCHLORIDE
  22. CURCUMIN [Concomitant]
     Active Substance: CURCUMIN

REACTIONS (1)
  - Peripheral swelling [None]

NARRATIVE: CASE EVENT DATE: 20200519
